FAERS Safety Report 12755077 (Version 1)
Quarter: 2016Q3

REPORT INFORMATION
  Report Type: Spontaneous
  Country: AU (occurrence: AU)
  Receive Date: 20160916
  Receipt Date: 20160916
  Transmission Date: 20161109
  Serious: Yes (Other)
  Sender: FDA-Public Use
  Company Number: AU-PFIZER INC-2016429972

PATIENT
  Age: 41 Year
  Sex: Female

DRUGS (7)
  1. KETAMINE HCL [Suspect]
     Active Substance: KETAMINE HYDROCHLORIDE
     Indication: PAIN MANAGEMENT
     Dosage: 12 MG/H (4 MG PER ML INFUSATE)
  2. PARACETAMOL/CODEINE [Concomitant]
     Active Substance: ACETAMINOPHEN\CODEINE PHOSPHATE
     Indication: ANALGESIC THERAPY
     Dosage: 30 MG/500 MG (2 TO 6 TABLETS PER DAY)
  3. GABAPENTIN. [Concomitant]
     Active Substance: GABAPENTIN
     Indication: RESTLESS LEGS SYNDROME
     Dosage: 300 MG, NOCTE (ON THE EVENING OF ADMISSION)
  4. PRAMIPEXOLE. [Concomitant]
     Active Substance: PRAMIPEXOLE
     Indication: RESTLESS LEGS SYNDROME
     Dosage: 0.25 MG, DAILY, AS NEEDED
  5. ESTRADIOL. [Concomitant]
     Active Substance: ESTRADIOL
     Indication: HORMONE REPLACEMENT THERAPY
     Dosage: UNK
     Route: 061
  6. TEMAZEPAM. [Concomitant]
     Active Substance: TEMAZEPAM
     Indication: INSOMNIA
     Dosage: 10 MG (ON THE EVENING OF ADMISSION)
  7. DYDROGESTERONE W/ESTRADIOL [Concomitant]
     Indication: HORMONE REPLACEMENT THERAPY
     Dosage: 10 MG/2 MG, ONCE DAILY

REACTIONS (6)
  - Chest pain [Unknown]
  - Urticaria [Recovered/Resolved]
  - Type I hypersensitivity [Unknown]
  - Circumoral oedema [Unknown]
  - Nausea [Recovered/Resolved]
  - Vomiting [Unknown]
